FAERS Safety Report 14691723 (Version 3)
Quarter: 2018Q2

REPORT INFORMATION
  Report Type: Spontaneous
  Country: DE (occurrence: DE)
  Receive Date: 20180329
  Receipt Date: 20180502
  Transmission Date: 20180711
  Serious: Yes (Hospitalization, Other)
  Sender: FDA-Public Use
  Company Number: DE-BRISTOL-MYERS SQUIBB COMPANY-BMS-2018-027094

PATIENT
  Age: 81 Year
  Sex: Female
  Weight: 57.5 kg

DRUGS (3)
  1. METOPROLOL. [Suspect]
     Active Substance: METOPROLOL
     Indication: PRODUCT USED FOR UNKNOWN INDICATION
     Dosage: 0.5 TAB, QD
     Route: 065
     Dates: start: 20180308
  2. ELIQUIS [Suspect]
     Active Substance: APIXABAN
     Indication: CEREBROVASCULAR ACCIDENT PROPHYLAXIS
     Dosage: 5 MG, BID
     Route: 048
     Dates: start: 20180308
  3. CLONID OPHTAL [Concomitant]
     Indication: INTRAOCULAR PRESSURE INCREASED
     Dosage: 1 DF, UNK
     Route: 065

REACTIONS (4)
  - Dry mouth [Unknown]
  - Atrial fibrillation [Unknown]
  - Pain [Recovered/Resolved]
  - Dysgeusia [Not Recovered/Not Resolved]
